FAERS Safety Report 4540346-X (Version None)
Quarter: 2004Q4

REPORT INFORMATION
  Report Type: 
  Country: None (occurrence: None)
  Receive Date: 20041228
  Receipt Date: 20041228
  Transmission Date: 20050328
  Serious: Yes (Hospitalization, Disabling, Other)
  Sender: FDA-Public Use
  Company Number: None

PATIENT
  Sex: Female
  Weight: 63.5036 kg

DRUGS (2)
  1. CELEBREX [Suspect]
     Indication: NECK PAIN
     Dosage: 200 MG -1 PER DAY
     Dates: start: 20000701, end: 20010601
  2. CELEBREX [Suspect]
     Indication: PAIN IN EXTREMITY
     Dosage: 200 MG -1 PER DAY
     Dates: start: 20000701, end: 20010601

REACTIONS (17)
  - ANOREXIA [None]
  - ANXIETY [None]
  - BLOOD PRESSURE INCREASED [None]
  - CHILLS [None]
  - CONFUSIONAL STATE [None]
  - DEPRESSION [None]
  - DIZZINESS [None]
  - HEART RATE INCREASED [None]
  - HYPOAESTHESIA [None]
  - INSOMNIA [None]
  - MUSCLE TIGHTNESS [None]
  - MYALGIA [None]
  - NIGHTMARE [None]
  - PANIC ATTACK [None]
  - PARAESTHESIA [None]
  - TREMOR [None]
  - WEIGHT DECREASED [None]
